FAERS Safety Report 23827094 (Version 1)
Quarter: 2024Q2

REPORT INFORMATION
  Report Type: Spontaneous
  Country: US (occurrence: US)
  Receive Date: 20240507
  Receipt Date: 20240507
  Transmission Date: 20240716
  Serious: No
  Sender: FDA-Public Use
  Company Number: US-GLENMARK PHARMACEUTICALS-2024GMK088758

PATIENT

DRUGS (1)
  1. RYALTRIS [Suspect]
     Active Substance: MOMETASONE FUROATE MONOHYDRATE\OLOPATADINE HYDROCHLORIDE
     Indication: Hypersensitivity
     Dosage: 1 DOSAGE FORM, BID, 2 TIMES PER DAY (ONE SPRAY INTO EACH NOSTRIL)
     Route: 045

REACTIONS (4)
  - Product use in unapproved indication [Unknown]
  - Drug dose omission by device [Unknown]
  - Product use issue [Unknown]
  - Device delivery system issue [Unknown]

NARRATIVE: CASE EVENT DATE: 20240101
